FAERS Safety Report 12933665 (Version 2)
Quarter: 2016Q4

REPORT INFORMATION
  Report Type: Report from Study
  Country: BE (occurrence: BE)
  Receive Date: 20161111
  Receipt Date: 20161128
  Transmission Date: 20170207
  Serious: Yes (Other)
  Sender: FDA-Public Use
  Company Number: PHHY2016BE137822

PATIENT
  Age: 69 Year
  Sex: Male

DRUGS (3)
  1. EXJADE [Suspect]
     Active Substance: DEFERASIROX
     Indication: MYELODYSPLASTIC SYNDROME
     Dosage: 500 MG, QD
     Route: 048
     Dates: start: 20160906, end: 201609
  2. EXJADE [Suspect]
     Active Substance: DEFERASIROX
     Dosage: 1.5 G, UNK
     Route: 048
     Dates: start: 20161026
  3. EXJADE [Suspect]
     Active Substance: DEFERASIROX
     Dosage: 1 G, QD
     Route: 048
     Dates: start: 201609, end: 20161025

REACTIONS (9)
  - Blood pressure decreased [Unknown]
  - Pain in extremity [Not Recovered/Not Resolved]
  - Joint swelling [Not Recovered/Not Resolved]
  - Diarrhoea [Not Recovered/Not Resolved]
  - Fall [Unknown]
  - Somnolence [Recovered/Resolved]
  - Urine analysis abnormal [Recovered/Resolved]
  - Heart rate increased [Unknown]
  - Wrist fracture [Not Recovered/Not Resolved]

NARRATIVE: CASE EVENT DATE: 2016
